FAERS Safety Report 10190913 (Version 3)
Quarter: 2014Q2

REPORT INFORMATION
  Report Type: Report from Study
  Country: CA (occurrence: CA)
  Receive Date: 20140523
  Receipt Date: 20140527
  Transmission Date: 20141212
  Serious: Yes (Other)
  Sender: FDA-Public Use
  Company Number: CA-ROCHE-1237163

PATIENT
  Age: 46 Year
  Sex: Female
  Weight: 105 kg

DRUGS (4)
  1. PERJETA [Suspect]
     Indication: HER-2 POSITIVE BREAST CANCER
     Route: 042
     Dates: start: 20130607
  2. HERCEPTIN [Suspect]
     Indication: BREAST CANCER METASTATIC
     Dosage: UNKNOWN DOSING
     Route: 042
     Dates: start: 20130607
  3. DOCETAXEL [Suspect]
     Indication: BREAST CANCER
     Dosage: UNKNOWN DOSING
     Route: 042
     Dates: start: 201101
  4. SYNTHROID [Concomitant]

REACTIONS (2)
  - Neck mass [Unknown]
  - Influenza like illness [Not Recovered/Not Resolved]
